FAERS Safety Report 8904730 (Version 1)
Quarter: 2012Q4

REPORT INFORMATION
  Report Type: 
  Country: US (occurrence: US)
  Receive Date: 20121113
  Receipt Date: 20121113
  Transmission Date: 20130627
  Serious: No
  Sender: FDA-Public Use
  Company Number: US-GLAXOSMITHKLINE-A0990986A

PATIENT
  Age: 64 Year
  Sex: Female

DRUGS (11)
  1. COREG [Suspect]
     Indication: CARDIAC FAILURE CONGESTIVE
     Dosage: 1TAB Per day
     Route: 048
     Dates: start: 20120816, end: 20120822
  2. PLAVIX [Concomitant]
  3. IMDUR [Concomitant]
  4. AZOR (AMLODIPINE BESILATE + OLMESARTAN MEDOXOMIL) [Concomitant]
  5. GLUCOTROL [Concomitant]
  6. METFORMIN [Concomitant]
  7. NEURONTIN [Concomitant]
  8. OMEGA 3 FISH OIL [Concomitant]
  9. LASIX [Concomitant]
  10. ELAVIL [Concomitant]
  11. ASPIRIN [Concomitant]

REACTIONS (7)
  - Malaise [Recovering/Resolving]
  - Nausea [Unknown]
  - Dizziness [Unknown]
  - Vomiting [Unknown]
  - Decreased appetite [Unknown]
  - Sleep disorder [Unknown]
  - Somnolence [Unknown]
